FAERS Safety Report 6341851-6 (Version None)
Quarter: 2009Q3

REPORT INFORMATION
  Report Type: 
  Country: None (occurrence: None)
  Receive Date: 20090904
  Receipt Date: 20090828
  Transmission Date: 20100115
  Serious: Yes (Other)
  Sender: FDA-Public Use
  Company Number: US-AMGEN-QUU360469

PATIENT
  Sex: Male
  Weight: 81.7 kg

DRUGS (2)
  1. ENBREL [Suspect]
     Indication: RHEUMATOID ARTHRITIS
     Route: 058
     Dates: start: 20030101
  2. VOLTAREN [Concomitant]
     Dates: start: 20030101

REACTIONS (2)
  - DYSPLASTIC NAEVUS SYNDROME [None]
  - MELANOCYTIC NAEVUS [None]
